FAERS Safety Report 9472094 (Version 1)
Quarter: 2013Q3

REPORT INFORMATION
  Report Type: Spontaneous
  Country: US (occurrence: US)
  Receive Date: 20130823
  Receipt Date: 20130823
  Transmission Date: 20140515
  Serious: No
  Sender: FDA-Public Use
  Company Number: US-009507513-1308USA009255

PATIENT
  Sex: Male

DRUGS (2)
  1. JANUMET [Suspect]
     Indication: DIABETES MELLITUS
     Dosage: UNK
     Route: 048
     Dates: start: 201308, end: 20130817
  2. LIPTRUZET [Concomitant]
     Dosage: UNK
     Route: 048
     Dates: start: 201308

REACTIONS (2)
  - Urticaria [Unknown]
  - Drug hypersensitivity [Unknown]
